FAERS Safety Report 13117710 (Version 2)
Quarter: 2017Q3

REPORT INFORMATION
  Report Type: Spontaneous
  Country: US (occurrence: US)
  Receive Date: 20170116
  Receipt Date: 20170707
  Transmission Date: 20171127
  Serious: No
  Sender: FDA-Public Use
  Company Number: US-JNJFOC-20170101423

PATIENT
  Sex: Male

DRUGS (9)
  1. RISPERDAL [Suspect]
     Active Substance: RISPERIDONE
     Indication: ANXIETY DISORDER
     Dosage: IN VARYING DOSE OF 0.5 MG TO 1 MG .
     Route: 048
     Dates: start: 200304, end: 200704
  2. INVEGA [Suspect]
     Active Substance: PALIPERIDONE
     Indication: BIPOLAR DISORDER
     Dosage: IN VARYING DOSE OF 3 MG TO 6 MG.
     Route: 048
     Dates: start: 201108, end: 201203
  3. RISPERDAL [Suspect]
     Active Substance: RISPERIDONE
     Indication: OBSESSIVE-COMPULSIVE DISORDER
     Dosage: IN VARYING DOSE OF 0.5 MG TO 3 MG
     Route: 048
     Dates: start: 200806, end: 201101
  4. RISPERDAL [Suspect]
     Active Substance: RISPERIDONE
     Indication: BIPOLAR DISORDER
     Dosage: IN VARYING DOSE OF 0.5 MG TO 3 MG
     Route: 048
     Dates: start: 200806, end: 201101
  5. INVEGA [Suspect]
     Active Substance: PALIPERIDONE
     Indication: OBSESSIVE-COMPULSIVE DISORDER
     Dosage: IN VARYING DOSE OF 3 MG TO 6 MG.
     Route: 048
     Dates: start: 201108, end: 201203
  6. RISPERDAL [Suspect]
     Active Substance: RISPERIDONE
     Indication: OBSESSIVE-COMPULSIVE DISORDER
     Dosage: IN VARYING DOSE OF 0.5 MG TO 1 MG .
     Route: 048
     Dates: start: 200304, end: 200704
  7. INVEGA [Suspect]
     Active Substance: PALIPERIDONE
     Indication: ANXIETY DISORDER
     Dosage: IN VARYING DOSE OF 3 MG TO 6 MG.
     Route: 048
     Dates: start: 201108, end: 201203
  8. RISPERDAL [Suspect]
     Active Substance: RISPERIDONE
     Indication: BIPOLAR DISORDER
     Dosage: IN VARYING DOSE OF 0.5 MG TO 1 MG .
     Route: 048
     Dates: start: 200304, end: 200704
  9. RISPERDAL [Suspect]
     Active Substance: RISPERIDONE
     Indication: ANXIETY DISORDER
     Dosage: IN VARYING DOSE OF 0.5 MG TO 3 MG
     Route: 048
     Dates: start: 200806, end: 201101

REACTIONS (2)
  - Gynaecomastia [Unknown]
  - Abnormal weight gain [Unknown]

NARRATIVE: CASE EVENT DATE: 2004
